FAERS Safety Report 16325270 (Version 1)
Quarter: 2019Q2

REPORT INFORMATION
  Report Type: Spontaneous
  Country: DE (occurrence: DE)
  Receive Date: 20190517
  Receipt Date: 20190517
  Transmission Date: 20190711
  Serious: Yes (Life-Threatening, Other)
  Sender: FDA-Public Use
  Company Number: DE-AMGEN-DEUSP2019076335

PATIENT
  Age: 57 Year
  Sex: Male
  Weight: 108 kg

DRUGS (4)
  1. METHOTREXAT [METHOTREXATE] [Suspect]
     Active Substance: METHOTREXATE
     Dosage: 15 MILLIGRAM, METEX 15 MG (PEN)
     Route: 058
     Dates: start: 20190415
  2. METHOTREXAT [METHOTREXATE] [Suspect]
     Active Substance: METHOTREXATE
     Indication: PSORIATIC ARTHROPATHY
     Dosage: 10 MILLIGRAM, QWK
     Route: 048
  3. REPATHA [Suspect]
     Active Substance: EVOLOCUMAB
     Indication: HYPERCHOLESTEROLAEMIA
     Dosage: 140 MILLIGRAM, Q2WK
     Route: 058
     Dates: start: 2016
  4. REPATHA [Suspect]
     Active Substance: EVOLOCUMAB
     Indication: DRUG INTOLERANCE

REACTIONS (4)
  - Troponin I increased [Not Recovered/Not Resolved]
  - Vascular stent thrombosis [Not Recovered/Not Resolved]
  - Renal failure [Not Recovered/Not Resolved]
  - Sepsis [Unknown]

NARRATIVE: CASE EVENT DATE: 2019
